FAERS Safety Report 8622724-2 (Version None)
Quarter: 2012Q3

REPORT INFORMATION
  Report Type: 
  Country: None (occurrence: None)
  Receive Date: 20120827
  Receipt Date: 20120821
  Transmission Date: 20120928
  Serious: Yes (Hospitalization)
  Sender: FDA-Public Use
  Company Number: US-JNJFOC-20120704706

PATIENT
  Sex: Male
  Weight: 56.8 kg

DRUGS (3)
  1. HUMIRA [Concomitant]
     Dates: start: 20101213
  2. BUDESONIDE [Concomitant]
  3. REMICADE [Suspect]
     Indication: CROHN'S DISEASE
     Route: 042
     Dates: start: 20100522

REACTIONS (1)
  - PERITONITIS [None]
